FAERS Safety Report 6237806-2 (Version None)
Quarter: 2009Q2

REPORT INFORMATION
  Report Type: 
  Country: None (occurrence: None)
  Receive Date: 20090617
  Receipt Date: 20090601
  Transmission Date: 20091009
  Serious: Yes (Death)
  Sender: FDA-Public Use
  Company Number: 8047612

PATIENT
  Age: 37 Year
  Sex: Male

DRUGS (8)
  1. LEVETIRACETAM [Suspect]
     Indication: EPILEPSY
  2. EPIRUBICIN [Concomitant]
  3. CISPLATIN [Concomitant]
  4. FLUOROURACIL [Concomitant]
  5. ALDACTONE [Concomitant]
  6. ALDACTONE [Concomitant]
  7. PREDNISOLONE, 12.5 MG [Concomitant]
  8. ENOXAPARIN SODIUM [Concomitant]

REACTIONS (9)
  - ANAEMIA [None]
  - ASCITES [None]
  - DEEP VEIN THROMBOSIS [None]
  - FATIGUE [None]
  - GASTRIC CANCER [None]
  - NAUSEA [None]
  - OEDEMA PERIPHERAL [None]
  - SIGNET-RING CELL CARCINOMA [None]
  - VOMITING [None]
